FAERS Safety Report 6175887-5 (Version None)
Quarter: 2009Q2

REPORT INFORMATION
  Report Type: 
  Country: None (occurrence: None)
  Receive Date: 20090501
  Receipt Date: 20090422
  Transmission Date: 20091009
  Serious: Yes (Other)
  Sender: FDA-Public Use
  Company Number: US-PFIZER INC-2009202780

PATIENT
  Sex: Female
  Weight: 75 kg

DRUGS (4)
  1. LIPITOR [Suspect]
     Indication: BLOOD CHOLESTEROL INCREASED
     Dosage: 40 MG, 1X/DAY
     Dates: start: 20080101
  2. AMLODIPINE [Concomitant]
     Indication: BLOOD PRESSURE
     Dosage: UNK
  3. PLAVIX [Concomitant]
     Dosage: UNK
  4. NEXIUM [Concomitant]
     Dosage: UNK

REACTIONS (3)
  - HEPATIC ENZYME INCREASED [None]
  - NEPHROLITHIASIS [None]
  - VAGINAL HAEMORRHAGE [None]
